FAERS Safety Report 9204959 (Version 1)
Quarter: 2013Q2

REPORT INFORMATION
  Report Type: Spontaneous
  Country: DK (occurrence: DK)
  Receive Date: 20130402
  Receipt Date: 20130402
  Transmission Date: 20140414
  Serious: Yes (Hospitalization)
  Sender: FDA-Public Use
  Company Number: DK-ASTRAZENECA-2013SE18847

PATIENT
  Sex: Male

DRUGS (1)
  1. XYLOCAIN [Suspect]
     Dosage: 10 MG/ML , 30MG (3ML) DOSE IN TOTAL DILUTED IN POTASSIUM CHLORIDE
     Route: 065
     Dates: start: 20130318

REACTIONS (1)
  - Cardiac fibrillation [Not Recovered/Not Resolved]
